FAERS Safety Report 7330036-2 (Version None)
Quarter: 2011Q1

REPORT INFORMATION
  Report Type: 
  Country: None (occurrence: None)
  Receive Date: 20110303
  Receipt Date: 20110216
  Transmission Date: 20110831
  Serious: Yes (Hospitalization, Other)
  Sender: FDA-Public Use
  Company Number: US-BAYER-201037632NA

PATIENT
  Sex: Female
  Weight: 59.41 kg

DRUGS (3)
  1. LORTAB [Concomitant]
     Dosage: UNK
     Dates: start: 20090714
  2. SENNA [Concomitant]
     Dosage: UNK
     Dates: start: 20090714
  3. YAZ [Suspect]
     Indication: CONTRACEPTION
     Route: 048
     Dates: start: 20070201, end: 20090801

REACTIONS (4)
  - CHOLECYSTITIS CHRONIC [None]
  - ABDOMINAL PAIN UPPER [None]
  - CHEST PAIN [None]
  - BILIARY DYSKINESIA [None]
